FAERS Safety Report 23384047 (Version 3)
Quarter: 2024Q1

REPORT INFORMATION
  Report Type: Spontaneous
  Country: US (occurrence: US)
  Receive Date: 20240109
  Receipt Date: 20240111
  Transmission Date: 20240410
  Serious: No
  Sender: FDA-Public Use
  Company Number: US-SANDOZ-SDZ2024US002388

PATIENT
  Sex: Female

DRUGS (8)
  1. DICLOFENAC [Suspect]
     Active Substance: DICLOFENAC
     Dosage: UNK, BID
     Route: 065
  2. DICLOFENAC [Suspect]
     Active Substance: DICLOFENAC
     Indication: Psoriasis
     Dosage: UNK
     Route: 065
  3. FAMOTIDINE [Concomitant]
     Active Substance: FAMOTIDINE
     Indication: Product used for unknown indication
     Dosage: 20 MG, BID (1 TABLET)
     Route: 048
  4. Glucosamine + chondoritin [Concomitant]
     Indication: Product used for unknown indication
     Dosage: UNK
     Route: 048
  5. MELATONIN [Concomitant]
     Active Substance: MELATONIN
     Indication: Product used for unknown indication
     Dosage: 3 MG (1TAB ORALLY 2-3X WEEKLY)
     Route: 048
  6. TIZANIDINE HYDROCHLORIDE [Concomitant]
     Active Substance: TIZANIDINE HYDROCHLORIDE
     Indication: Product used for unknown indication
     Dosage: 1 TABLET BY MOUTH EVERY DAY AT BEDTIME AS NEEDED
     Route: 048
  7. HYDROCHLOROTHIAZIDE\TRIAMTERENE [Concomitant]
     Active Substance: HYDROCHLOROTHIAZIDE\TRIAMTERENE
     Indication: Product used for unknown indication
     Dosage: 37.5-25 MG TABLET 1TAB , QD
     Route: 048
  8. VITAMIN D3 [Concomitant]
     Active Substance: CHOLECALCIFEROL
     Indication: Product used for unknown indication
     Dosage: 50 UG, QD (1 TABLET) (2000 UT)
     Route: 048

REACTIONS (3)
  - Laboratory test abnormal [Unknown]
  - Back pain [Unknown]
  - Musculoskeletal stiffness [Unknown]
